FAERS Safety Report 6023875-1 (Version None)
Quarter: 2008Q4

REPORT INFORMATION
  Report Type: 
  Country: None (occurrence: None)
  Receive Date: 20081230
  Receipt Date: 20081222
  Transmission Date: 20090506
  Serious: Yes (Other)
  Sender: FDA-Public Use
  Company Number: US-PFIZER INC-2008095800

PATIENT
  Sex: Female
  Weight: 63.492 kg

DRUGS (4)
  1. LIPITOR [Suspect]
     Dosage: 10 MG, 1X/DAY
     Route: 048
     Dates: start: 20020101, end: 20081101
  2. LIPITOR [Suspect]
     Route: 048
  3. ACETYLSALICYLIC ACID SRT [Suspect]
     Dosage: UNK
  4. CENTRUM SILVER [Concomitant]
     Dosage: UNK

REACTIONS (2)
  - CONTUSION [None]
  - THROMBOCYTOPENIA [None]
